FAERS Safety Report 15049250 (Version 1)
Quarter: 2018Q3

REPORT INFORMATION
  Report Type: Spontaneous
  Country: DE (occurrence: DE)
  Receive Date: 20180622
  Receipt Date: 20180622
  Transmission Date: 20181010
  Serious: Yes (Hospitalization)
  Sender: FDA-Public Use
  Company Number: DE-TEVA-2018-DE-910122

PATIENT
  Age: 40 Year
  Sex: Female

DRUGS (1)
  1. VENLAFAXIN?RATIOPHARM 37,5 MG RETARDTABLETTEN [Suspect]
     Active Substance: VENLAFAXINE HYDROCHLORIDE
     Indication: DEPRESSION
     Dates: start: 2018

REACTIONS (3)
  - Drug ineffective [Unknown]
  - Depression [Recovered/Resolved]
  - Product substitution issue [Unknown]

NARRATIVE: CASE EVENT DATE: 201806
